FAERS Safety Report 9718625 (Version 1)
Quarter: 2013Q4

REPORT INFORMATION
  Report Type: Spontaneous
  Country: US (occurrence: US)
  Receive Date: 20131125
  Receipt Date: 20131125
  Transmission Date: 20140711
  Serious: No
  Sender: FDA-Public Use
  Company Number: US-VIVUS-2012V1000322

PATIENT
  Sex: Female
  Weight: 88.53 kg

DRUGS (14)
  1. QSYMIA 3.75MG/23MG [Suspect]
     Indication: WEIGHT DECREASED
     Route: 048
  2. ZOLOFT [Concomitant]
     Indication: DEPRESSION
     Route: 048
     Dates: start: 2010
  3. LAMICTAL [Concomitant]
     Indication: MOOD SWINGS
     Route: 048
     Dates: start: 2012
  4. COMBIPATCH [Concomitant]
     Indication: MENOPAUSE
     Route: 062
     Dates: start: 2011
  5. LUNESTA [Concomitant]
     Indication: SLEEP DISORDER
     Route: 048
  6. CELEBREX [Concomitant]
     Indication: ARTHRITIS
     Route: 048
  7. PROVIGIL [Concomitant]
     Indication: SOMNOLENCE
     Route: 048
     Dates: start: 2012
  8. ELMIRON [Concomitant]
     Indication: CYSTITIS INTERSTITIAL
     Route: 048
     Dates: start: 2011
  9. ELAVIL [Concomitant]
     Indication: MICTURITION URGENCY
  10. VARIOUS VITAMINS [Concomitant]
     Indication: ROUTINE HEALTH MAINTENANCE
  11. VICODIN [Concomitant]
     Indication: BACK PAIN
     Route: 048
  12. VICODIN [Concomitant]
     Indication: SCIATICA
  13. VICODIN [Concomitant]
     Indication: SPINAL COLUMN STENOSIS
  14. CORTISONE INJECTION [Concomitant]
     Indication: BACK PAIN

REACTIONS (4)
  - Fatigue [Recovering/Resolving]
  - Cognitive disorder [Recovered/Resolved]
  - Headache [Recovered/Resolved]
  - Vision blurred [Recovered/Resolved]
